FAERS Safety Report 17185438 (Version 1)
Quarter: 2019Q4

REPORT INFORMATION
  Report Type: Spontaneous
  Country: FR (occurrence: FR)
  Receive Date: 20191220
  Receipt Date: 20191220
  Transmission Date: 20200122
  Serious: Yes (Hospitalization)
  Sender: FDA-Public Use
  Company Number: FR-MYLANLABS-2019M1125850

PATIENT
  Age: 54 Year
  Sex: Male
  Weight: 68 kg

DRUGS (5)
  1. ONDANSETRON ACCORD [Suspect]
     Active Substance: ONDANSETRON
     Indication: PROPHYLAXIS OF NAUSEA AND VOMITING
     Dosage: 8MG, ? J1 ET J22/CURE
     Route: 042
     Dates: start: 20190708, end: 20190729
  2. EMEND [Suspect]
     Active Substance: APREPITANT
     Indication: PROPHYLAXIS OF NAUSEA AND VOMITING
     Dosage: 125MG J1, 80MG J2 J3/CURE
     Route: 048
     Dates: start: 20190708, end: 20190729
  3. CISPLATIN MYLAN [Suspect]
     Active Substance: CISPLATIN
     Indication: TONSIL CANCER
     Dosage: ? J1 ET J22
     Route: 042
     Dates: start: 20190708, end: 20190729
  4. SOLU-MEDROL [Suspect]
     Active Substance: METHYLPREDNISOLONE SODIUM SUCCINATE
     Indication: PROPHYLAXIS OF NAUSEA AND VOMITING
     Dosage: 80MG J1 ET J22/CURE
     Route: 065
     Dates: start: 20190708, end: 20190729
  5. AMOXICILLIN CLAVULANIC ACID [Suspect]
     Active Substance: AMOXICILLIN\CLAVULANIC ACID
     Indication: PYREXIA
     Dosage: 1 GRAM, TOTAL
     Route: 042
     Dates: start: 20190730, end: 20190730

REACTIONS (2)
  - Rash maculo-papular [Recovering/Resolving]
  - Hepatocellular injury [Not Recovered/Not Resolved]

NARRATIVE: CASE EVENT DATE: 20190730
